FAERS Safety Report 19495581 (Version 3)
Quarter: 2021Q3

REPORT INFORMATION
  Report Type: Spontaneous
  Country: NZ (occurrence: NZ)
  Receive Date: 20210706
  Receipt Date: 20210806
  Transmission Date: 20211014
  Serious: Yes (Other)
  Sender: FDA-Public Use
  Company Number: NZ-TERSERA THERAPEUTICS LLC-2021TRS003175

PATIENT

DRUGS (1)
  1. ZOLADEX [Suspect]
     Active Substance: GOSERELIN ACETATE
     Indication: UTERINE LEIOMYOMA
     Dosage: 10.8 MILLIGRAM
     Route: 058
     Dates: start: 202009

REACTIONS (9)
  - Amenorrhoea [Unknown]
  - Drug ineffective [Unknown]
  - Hyperhidrosis [Unknown]
  - Mental disorder [Unknown]
  - Suicidal ideation [Unknown]
  - Hypertension [Unknown]
  - Anovulatory cycle [Unknown]
  - Cardiac disorder [Unknown]
  - Hot flush [Recovered/Resolved]
